FAERS Safety Report 20200281 (Version 3)
Quarter: 2022Q1

REPORT INFORMATION
  Report Type: Report from Study
  Country: PL (occurrence: None)
  Receive Date: 20211217
  Receipt Date: 20220115
  Transmission Date: 20220423
  Serious: Yes (Hospitalization)
  Sender: FDA-Public Use
  Company Number: PL-ROCHE-2977252

PATIENT
  Age: 35 Year
  Sex: Female
  Weight: 72 kg

DRUGS (5)
  1. OCRELIZUMAB [Suspect]
     Active Substance: OCRELIZUMAB
     Indication: Relapsing-remitting multiple sclerosis
     Dosage: DATE OF LAST OCRELIZUMAB ADMINISTERED PRIOR TO THIS EVENT ONSET WAS 13/OCT/2021 (600 MG)?ADDITIONAL
     Route: 042
     Dates: start: 20190104
  2. METHYLPREDNISOLONE [Suspect]
     Active Substance: METHYLPREDNISOLONE
     Indication: Premedication
     Dosage: DOSE OF LAST METHYLPREDNISOLONE ADMINISTERED PRIOR TO THIS EVENT ONSET WAS 125 MG?NEXT DOSE ON 16/JA
     Route: 042
     Dates: start: 20190104
  3. APAP NOC [Concomitant]
     Dosage: NEXT DOSE ON 16/JAN/2019, 12/JUN/2019, 18/DEC/2019, 22/JUN/2020, 09/NOV/2020, 21/APR/202, 13/OCT/202
     Route: 048
     Dates: start: 20190104
  4. SARS-COV-2 VACCINE [Concomitant]
     Indication: Prophylaxis
     Route: 030
     Dates: start: 20210713, end: 20210713
  5. COVID-19 VACCINE [Concomitant]
     Indication: Prophylaxis
     Route: 030
     Dates: start: 20210609, end: 20210609

REACTIONS (1)
  - COVID-19 [Recovered/Resolved]

NARRATIVE: CASE EVENT DATE: 20211129
